FAERS Safety Report 16312901 (Version 1)
Quarter: 2019Q2

REPORT INFORMATION
  Report Type: Spontaneous
  Country: US (occurrence: US)
  Receive Date: 20190409
  Receipt Date: 20190409
  Transmission Date: 20190711
  Serious: No
  Sender: FDA-Public Use
  Company Number: None

PATIENT
  Age: 36 Year
  Sex: Male

DRUGS (2)
  1. COSENTYX [Suspect]
     Active Substance: SECUKINUMAB
     Indication: PSORIATIC ARTHROPATHY
     Dosage: INJECT 150MG (1 PEN) SUBCUTANEOUSLY EVERY WEEK  FOR 5 WEEKS  AS DIRECTED
     Route: 058
     Dates: start: 201810
  2. COSENTYX [Suspect]
     Active Substance: SECUKINUMAB
     Indication: RHEUMATOID ARTHRITIS
     Dosage: INJECT 150MG (1 PEN) SUBCUTANEOUSLY EVERY WEEK  FOR 5 WEEKS  AS DIRECTED
     Route: 058
     Dates: start: 201810

REACTIONS (3)
  - Road traffic accident [None]
  - Gastrostomy tube site complication [None]
  - Infection [None]
